FAERS Safety Report 9373416 (Version 1)
Quarter: 2013Q2

REPORT INFORMATION
  Report Type: Spontaneous
  Country: CZ (occurrence: CZ)
  Receive Date: 20130627
  Receipt Date: 20130627
  Transmission Date: 20140414
  Serious: Yes (Other)
  Sender: FDA-Public Use
  Company Number: CZ-PFIZER INC-2013174760

PATIENT
  Sex: Male

DRUGS (1)
  1. DALACIN C [Suspect]
     Dosage: 300 MG, 4X/DAY
     Route: 048
     Dates: start: 20130603

REACTIONS (3)
  - Erosive oesophagitis [Recovered/Resolved]
  - Sensation of foreign body [Recovered/Resolved]
  - Oesophageal pain [Recovered/Resolved]
